FAERS Safety Report 20137066 (Version 2)
Quarter: 2022Q1

REPORT INFORMATION
  Report Type: Spontaneous
  Country: AR (occurrence: AR)
  Receive Date: 20211201
  Receipt Date: 20220105
  Transmission Date: 20220423
  Serious: Yes (Other)
  Sender: FDA-Public Use
  Company Number: AR-ORGANON-O2110ARG002891

PATIENT
  Age: 77 Year
  Sex: Female

DRUGS (3)
  1. REMERON [Suspect]
     Active Substance: MIRTAZAPINE
     Indication: Depressed mood
     Dosage: ONE TABLET, EVERY NIGHT
     Route: 048
     Dates: start: 20111028
  2. ASPIRIN [Suspect]
     Active Substance: ASPIRIN
     Indication: Infarction
     Dosage: UNK, QD
  3. RIVOTRIL [Suspect]
     Active Substance: CLONAZEPAM
     Dosage: 0.5 DOSAGE FORM, EVERYDAY

REACTIONS (7)
  - Cerebrovascular accident [Unknown]
  - Therapeutic product effect decreased [Unknown]
  - Pain [Unknown]
  - Bone pain [Unknown]
  - Depressed mood [Unknown]
  - Product blister packaging issue [Unknown]
  - Suspected counterfeit product [Unknown]

NARRATIVE: CASE EVENT DATE: 20210522
